FAERS Safety Report 20878392 (Version 2)
Quarter: 2022Q2

REPORT INFORMATION
  Report Type: Spontaneous
  Country: US (occurrence: US)
  Receive Date: 20220526
  Receipt Date: 20220616
  Transmission Date: 20220721
  Serious: No
  Sender: FDA-Public Use
  Company Number: US-PFIZER INC-202200744987

PATIENT
  Age: 67 Year
  Sex: Male
  Weight: 108.86 kg

DRUGS (3)
  1. PAXLOVID [Suspect]
     Active Substance: NIRMATRELVIR\RITONAVIR
     Indication: COVID-19 treatment
     Dosage: 2 DF IN THE MORNING
     Route: 048
  2. PAXLOVID [Suspect]
     Active Substance: NIRMATRELVIR\RITONAVIR
     Dosage: 1 DF IN THE EVENING
     Route: 048
  3. PAXLOVID [Suspect]
     Active Substance: NIRMATRELVIR\RITONAVIR
     Dosage: 3 DF
     Route: 048
     Dates: start: 20220518, end: 20220523

REACTIONS (4)
  - Product label confusion [Unknown]
  - Product communication issue [Unknown]
  - Incorrect dose administered [Unknown]
  - Product dispensing error [Unknown]
